FAERS Safety Report 10108231 (Version 1)
Quarter: 2014Q2

REPORT INFORMATION
  Report Type: Spontaneous
  Country: PL (occurrence: PL)
  Receive Date: 20140425
  Receipt Date: 20140425
  Transmission Date: 20141212
  Serious: Yes (Other)
  Sender: FDA-Public Use
  Company Number: PL-ROCHE-1383644

PATIENT
  Age: 74 Year
  Sex: Male
  Weight: 96 kg

DRUGS (1)
  1. XELODA [Suspect]
     Indication: RECTOSIGMOID CANCER
     Route: 048
     Dates: start: 20131105, end: 20131119

REACTIONS (2)
  - Diarrhoea [Recovering/Resolving]
  - Electrolyte imbalance [Recovering/Resolving]
